FAERS Safety Report 8337911-0 (Version None)
Quarter: 2012Q1

REPORT INFORMATION
  Report Type: 
  Country: None (occurrence: None)
  Receive Date: 20120329
  Receipt Date: 20101103
  Transmission Date: 20120608
  Serious: Yes (Life-Threatening, Hospitalization)
  Sender: FDA-Public Use
  Company Number: PHHY2010US74103

PATIENT
  Age: 88 Year
  Sex: Male
  Weight: 67.2 kg

DRUGS (14)
  1. ZOCOR [Concomitant]
  2. ZOLOFT [Concomitant]
  3. PLAVIX [Concomitant]
  4. EXELON [Suspect]
     Indication: DEMENTIA ALZHEIMER'S TYPE
     Dosage: 4.6 MG, QD, TRANSDERMAL, 9.5 MG, QD, TRANSDERMAL
     Route: 062
     Dates: start: 20100629
  5. EXELON [Suspect]
     Indication: DEMENTIA ALZHEIMER'S TYPE
     Dosage: 4.6 MG, QD, TRANSDERMAL, 9.5 MG, QD, TRANSDERMAL
     Route: 062
     Dates: start: 20101001, end: 20101022
  6. ATIVAN [Concomitant]
  7. ZESTORETIC [Concomitant]
  8. ASPIRIN [Concomitant]
  9. RESTORIL [Concomitant]
  10. NAMENDA [Concomitant]
  11. NORVASC [Concomitant]
  12. PRILOSEC [Concomitant]
  13. METOPROLOL TARTRATE [Concomitant]
  14. PROSCAR [Concomitant]

REACTIONS (1)
  - HAEMATEMESIS [None]
